FAERS Safety Report 4589561-X (Version None)
Quarter: 2005Q1

REPORT INFORMATION
  Report Type: 
  Country: None (occurrence: None)
  Receive Date: 20050217
  Receipt Date: 20050201
  Transmission Date: 20050727
  Serious: No
  Sender: FDA-Public Use
  Company Number: 10163

PATIENT
  Age: 52 Year
  Sex: Female

DRUGS (4)
  1. DACARBAZINE [Suspect]
     Indication: METASTASES TO LIVER
     Dosage: 1700 MG OTH
  2. DACARBAZINE [Suspect]
     Indication: METASTASES TO LUNG
     Dosage: 1700 MG OTH
  3. DACARBAZINE [Suspect]
     Indication: METASTATIC MALIGNANT MELANOMA
     Dosage: 1700 MG OTH
  4. TEMOZOLOMIDE [Concomitant]

REACTIONS (8)
  - ANTINUCLEAR ANTIBODY POSITIVE [None]
  - FACE OEDEMA [None]
  - HEMIPLEGIA [None]
  - METASTASES TO CENTRAL NERVOUS SYSTEM [None]
  - MYALGIA [None]
  - SKIN DISORDER [None]
  - SKIN OEDEMA [None]
  - SKIN TIGHTNESS [None]
